FAERS Safety Report 4334853-2 (Version None)
Quarter: 2004Q2

REPORT INFORMATION
  Report Type: 
  Country: None (occurrence: None)
  Receive Date: 20040405
  Receipt Date: 20040326
  Transmission Date: 20050107
  Serious: Yes (Life-Threatening, Hospitalization)
  Sender: FDA-Public Use
  Company Number: 2004205105JP

PATIENT
  Age: 22 Year
  Sex: Female

DRUGS (6)
  1. ALPRAZOLAM [Suspect]
     Dosage: 16 MG, SINGLE, ORAL
     Route: 048
     Dates: start: 20040319, end: 20040319
  2. LEXOTAN (BROMAZEPAM) [Suspect]
     Dosage: 150 MG, SINGLE, ORAL
     Route: 048
     Dates: start: 20040319, end: 20040319
  3. DEPAS (ETIZOLAM) [Suspect]
     Dosage: 21 MG, SINGLE, ORAL
     Route: 048
     Dates: start: 20040319, end: 20040319
  4. EVAMYL (LORMETAZEPAM) [Suspect]
     Dosage: 10 MG, SINGLE, ORAL
     Route: 048
     Dates: start: 20040319, end: 20040319
  5. RISPERDAL [Suspect]
     Dosage: 60 MG, SINGLE, ORAL
     Route: 048
     Dates: start: 20040319, end: 20040319
  6. DORAL [Suspect]
     Dosage: 200 MG, SINGLE, ORAL
     Route: 048
     Dates: start: 20040319, end: 20040319

REACTIONS (7)
  - ASTHENIA [None]
  - DRUG TOXICITY [None]
  - INTENTIONAL OVERDOSE [None]
  - MULTIPLE DRUG OVERDOSE [None]
  - RENAL IMPAIRMENT [None]
  - SOMNOLENCE [None]
  - SUICIDE ATTEMPT [None]
